FAERS Safety Report 6246732-4 (Version None)
Quarter: 2009Q2

REPORT INFORMATION
  Report Type: 
  Country: None (occurrence: None)
  Receive Date: 20090626
  Receipt Date: 20090623
  Transmission Date: 20091009
  Serious: Yes (Hospitalization)
  Sender: FDA-Public Use
  Company Number: US-WYE-H09869309

PATIENT
  Age: 55 Year
  Sex: Female
  Weight: 95.9 kg

DRUGS (2)
  1. TORISEL [Suspect]
     Indication: ENDOMETRIAL CANCER
     Dosage: 25 MG DAYS 1,8,15 AND 22
     Route: 042
     Dates: start: 20081209, end: 20090505
  2. BEVACIZUMAB [Suspect]
     Indication: ENDOMETRIAL CANCER
     Dosage: 10 MG/KG DAYS 1, 15 (TOTAL DOSE THIS COURSE 1680 MG)
     Route: 042
     Dates: start: 20081209, end: 20090428

REACTIONS (3)
  - FATIGUE [None]
  - NAUSEA [None]
  - VOMITING [None]
